FAERS Safety Report 10785114 (Version 1)
Quarter: 2015Q1

REPORT INFORMATION
  Report Type: Spontaneous
  Country: IN (occurrence: None)
  Receive Date: 20150209
  Receipt Date: 20150209
  Transmission Date: 20150721
  Serious: Yes (Hospitalization)
  Sender: FDA-Public Use
  Company Number: NSR_01824_2015

PATIENT
  Age: 35 Year
  Sex: Female

DRUGS (2)
  1. ATENOLOL (ATENOLOL) [Suspect]
     Active Substance: ATENOLOL
     Indication: PRODUCT USED FOR UNKNOWN INDICATION
     Dosage: 100 DF,  NOT THE PRESCRIBED AMOUNT??
  2. AMLODIPINE BESYLATE. [Suspect]
     Active Substance: AMLODIPINE BESYLATE
     Indication: PRODUCT USED FOR UNKNOWN INDICATION
     Dosage: 100 DF, NOT THE PRESCRIBED AMOUNT?

REACTIONS (15)
  - Intentional overdose [None]
  - Depressed level of consciousness [None]
  - Tachypnoea [None]
  - Toxicity to various agents [None]
  - Suicidal ideation [None]
  - Blood urea increased [None]
  - Tachycardia [None]
  - Metabolic acidosis [None]
  - Blood creatinine increased [None]
  - Urine output decreased [None]
  - Blood pressure decreased [None]
  - Prolonged expiration [None]
  - Atrioventricular block second degree [None]
  - Continuous haemodiafiltration [None]
  - Blood glucose increased [None]
